FAERS Safety Report 18283407 (Version 2)
Quarter: 2020Q4

REPORT INFORMATION
  Report Type: Report from Study
  Country: None (occurrence: CO)
  Receive Date: 20200918
  Receipt Date: 20201008
  Transmission Date: 20210113
  Serious: Yes (Hospitalization)
  Sender: FDA-Public Use
  Company Number: CO-ABBVIE-20K-036-3572236-00

PATIENT
  Age: 30 Year
  Sex: Female
  Weight: 96 kg

DRUGS (1)
  1. HUMIRA [Suspect]
     Active Substance: ADALIMUMAB
     Indication: ANKYLOSING SPONDYLITIS
     Route: 058
     Dates: start: 20190412, end: 20200508

REACTIONS (8)
  - Pneumothorax [Recovering/Resolving]
  - Breath sounds abnormal [Recovering/Resolving]
  - Lung disorder [Recovering/Resolving]
  - Illness [Recovering/Resolving]
  - COVID-19 [Recovered/Resolved with Sequelae]
  - Arthralgia [Recovering/Resolving]
  - Discomfort [Recovering/Resolving]
  - Oxygen saturation decreased [Recovered/Resolved]

NARRATIVE: CASE EVENT DATE: 2020
